FAERS Safety Report 13002662 (Version 1)
Quarter: 2016Q4

REPORT INFORMATION
  Report Type: Report from Study
  Country: JP (occurrence: JP)
  Receive Date: 20161206
  Receipt Date: 20161206
  Transmission Date: 20170207
  Serious: Yes (Death, Hospitalization, Other)
  Sender: FDA-Public Use
  Company Number: PHJP2016JP034912

PATIENT
  Age: 68 Year
  Sex: Female

DRUGS (45)
  1. PREDNISONE. [Suspect]
     Active Substance: PREDNISONE
     Dosage: 100 MG, QD
     Route: 065
     Dates: start: 20150511, end: 20150511
  2. PREDNISONE. [Suspect]
     Active Substance: PREDNISONE
     Dosage: 100 MG, QD
     Route: 065
     Dates: start: 20150605, end: 20150605
  3. POLARAMINE [Concomitant]
     Active Substance: DEXCHLORPHENIRAMINE MALEATE
     Dosage: 5 MG, QD
     Route: 065
     Dates: start: 20150528, end: 20150528
  4. SULFAMETHOXAZOLE AND TRIMETHOPRIM [Concomitant]
     Active Substance: SULFAMETHOXAZOLE\TRIMETHOPRIM
     Indication: INFECTION PROPHYLAXIS
     Dosage: 1 DF, UNK
     Route: 048
     Dates: start: 20150408
  5. OFATUMUMAB [Suspect]
     Active Substance: OFATUMUMAB
     Dosage: 20300 MG, QD
     Route: 041
     Dates: start: 20160107, end: 20160107
  6. PREDNISONE. [Suspect]
     Active Substance: PREDNISONE
     Indication: PRODUCT USED FOR UNKNOWN INDICATION
     Dosage: 100 MG, QD
     Route: 065
     Dates: start: 20150408, end: 20150408
  7. PREDNISONE. [Suspect]
     Active Substance: PREDNISONE
     Dosage: 100 MG, QD
     Route: 065
     Dates: start: 20150520, end: 20150520
  8. PREDNISONE. [Suspect]
     Active Substance: PREDNISONE
     Dosage: 100 MG, QD
     Route: 065
     Dates: start: 20150918, end: 20150918
  9. ACETAMINOPHEN. [Concomitant]
     Active Substance: ACETAMINOPHEN
     Dosage: 400 MG, QD
     Route: 065
     Dates: start: 20150427, end: 20150427
  10. ACETAMINOPHEN. [Concomitant]
     Active Substance: ACETAMINOPHEN
     Dosage: 400 MG, QD
     Route: 065
     Dates: start: 20150511, end: 20150511
  11. POLARAMINE [Concomitant]
     Active Substance: DEXCHLORPHENIRAMINE MALEATE
     Dosage: 5 MG, QD
     Route: 065
     Dates: start: 20150420, end: 20150420
  12. POLARAMINE [Concomitant]
     Active Substance: DEXCHLORPHENIRAMINE MALEATE
     Dosage: 5 MG, QD
     Route: 065
     Dates: start: 20150918, end: 20150918
  13. OFATUMUMAB [Suspect]
     Active Substance: OFATUMUMAB
     Dosage: 2300 MG, QD
     Route: 041
     Dates: start: 20150420, end: 20150420
  14. OFATUMUMAB [Suspect]
     Active Substance: OFATUMUMAB
     Dosage: 8300 MG, QD
     Route: 041
     Dates: start: 20150520, end: 20150520
  15. PREDNISONE. [Suspect]
     Active Substance: PREDNISONE
     Dosage: 100 MG, QD
     Route: 065
     Dates: start: 20150427, end: 20150427
  16. ACETAMINOPHEN. [Concomitant]
     Active Substance: ACETAMINOPHEN
     Indication: PREMEDICATION
     Dosage: 400 MG, QD
     Route: 065
     Dates: start: 20150408, end: 20150408
  17. POLARAMINE [Concomitant]
     Active Substance: DEXCHLORPHENIRAMINE MALEATE
     Dosage: 5 MG, QD
     Route: 065
     Dates: start: 20150615, end: 20150615
  18. OFATUMUMAB [Suspect]
     Active Substance: OFATUMUMAB
     Indication: CHRONIC LYMPHOCYTIC LEUKAEMIA
     Dosage: 200 MG, QD
     Route: 041
     Dates: start: 20150408, end: 20150408
  19. OFATUMUMAB [Suspect]
     Active Substance: OFATUMUMAB
     Dosage: 4300 MG, QD
     Route: 041
     Dates: start: 20150427, end: 20150427
  20. OFATUMUMAB [Suspect]
     Active Substance: OFATUMUMAB
     Dosage: 6300 MG, QD
     Route: 041
     Dates: start: 20150511, end: 20150511
  21. OFATUMUMAB [Suspect]
     Active Substance: OFATUMUMAB
     Dosage: 10300 MG, QD
     Route: 041
     Dates: start: 20150528, end: 20150528
  22. PREDNISONE. [Suspect]
     Active Substance: PREDNISONE
     Dosage: 100 MG, QD
     Route: 065
     Dates: start: 20160107, end: 20160107
  23. POLARAMINE [Concomitant]
     Active Substance: DEXCHLORPHENIRAMINE MALEATE
     Indication: PREMEDICATION
     Dosage: 5 MG, QD
     Route: 065
     Dates: start: 20150408, end: 20150408
  24. ACETAMINOPHEN. [Concomitant]
     Active Substance: ACETAMINOPHEN
     Dosage: 400 MG, QD
     Route: 065
     Dates: start: 20150605, end: 20150605
  25. ACETAMINOPHEN. [Concomitant]
     Active Substance: ACETAMINOPHEN
     Dosage: 400 MG, QD
     Route: 065
     Dates: start: 20151207, end: 20151207
  26. OFATUMUMAB [Suspect]
     Active Substance: OFATUMUMAB
     Dosage: 16300 MG, QD
     Route: 041
     Dates: start: 20150918, end: 20150918
  27. OFATUMUMAB [Suspect]
     Active Substance: OFATUMUMAB
     Dosage: 18300 MG, QD
     Route: 041
     Dates: start: 20151207, end: 20151207
  28. PREDNISONE. [Suspect]
     Active Substance: PREDNISONE
     Dosage: 100 MG, QD
     Route: 065
     Dates: start: 20150615, end: 20150615
  29. PREDNISONE. [Suspect]
     Active Substance: PREDNISONE
     Dosage: 100 MG, QD
     Route: 065
     Dates: start: 20151207, end: 20151207
  30. ACETAMINOPHEN. [Concomitant]
     Active Substance: ACETAMINOPHEN
     Dosage: 400 MG, QD
     Route: 065
     Dates: start: 20150528, end: 20150528
  31. ACETAMINOPHEN. [Concomitant]
     Active Substance: ACETAMINOPHEN
     Dosage: 400 MG, QD
     Route: 065
     Dates: start: 20150615, end: 20150615
  32. ACETAMINOPHEN. [Concomitant]
     Active Substance: ACETAMINOPHEN
     Dosage: 400 MG, QD
     Route: 065
     Dates: start: 20150918, end: 20150918
  33. ACETAMINOPHEN. [Concomitant]
     Active Substance: ACETAMINOPHEN
     Dosage: 400 MG, QD
     Route: 065
     Dates: start: 20160107, end: 20160107
  34. POLARAMINE [Concomitant]
     Active Substance: DEXCHLORPHENIRAMINE MALEATE
     Dosage: 5 MG, QD
     Route: 065
     Dates: start: 20150427, end: 20150427
  35. POLARAMINE [Concomitant]
     Active Substance: DEXCHLORPHENIRAMINE MALEATE
     Dosage: 5 MG, QD
     Route: 065
     Dates: start: 20150511, end: 20150511
  36. POLARAMINE [Concomitant]
     Active Substance: DEXCHLORPHENIRAMINE MALEATE
     Dosage: 5 MG, QD
     Route: 065
     Dates: start: 20150605, end: 20150605
  37. POLARAMINE [Concomitant]
     Active Substance: DEXCHLORPHENIRAMINE MALEATE
     Dosage: 5 MG, QD
     Route: 065
     Dates: start: 20151207, end: 20151207
  38. PREDNISONE. [Suspect]
     Active Substance: PREDNISONE
     Dosage: 100 MG, QD
     Route: 065
     Dates: start: 20150420, end: 20150420
  39. PREDNISONE. [Suspect]
     Active Substance: PREDNISONE
     Dosage: 100 MG, QD
     Route: 065
     Dates: start: 20150528, end: 20150528
  40. ACETAMINOPHEN. [Concomitant]
     Active Substance: ACETAMINOPHEN
     Dosage: 400 MG, QD
     Route: 065
     Dates: start: 20150520, end: 20150520
  41. OFATUMUMAB [Suspect]
     Active Substance: OFATUMUMAB
     Dosage: 12300 MG, QD
     Route: 041
     Dates: start: 20150605, end: 20150605
  42. OFATUMUMAB [Suspect]
     Active Substance: OFATUMUMAB
     Dosage: 14300 MG, QD
     Route: 041
     Dates: start: 20150615, end: 20150615
  43. ACETAMINOPHEN. [Concomitant]
     Active Substance: ACETAMINOPHEN
     Dosage: 400 MG, QD
     Route: 065
     Dates: start: 20150420, end: 20150420
  44. POLARAMINE [Concomitant]
     Active Substance: DEXCHLORPHENIRAMINE MALEATE
     Dosage: 5 MG, QD
     Route: 065
     Dates: start: 20150520, end: 20150520
  45. POLARAMINE [Concomitant]
     Active Substance: DEXCHLORPHENIRAMINE MALEATE
     Dosage: 5 MG, QD
     Route: 065
     Dates: start: 20160107, end: 20160107

REACTIONS (13)
  - Chronic lymphocytic leukaemia [Fatal]
  - Anaemia [Not Recovered/Not Resolved]
  - General physical health deterioration [Unknown]
  - Pharyngeal oedema [Recovered/Resolved]
  - Larynx irritation [Recovered/Resolved]
  - Malignant neoplasm progression [Fatal]
  - Platelet count decreased [Not Recovered/Not Resolved]
  - Condition aggravated [Unknown]
  - Candida infection [Not Recovered/Not Resolved]
  - Sepsis [Recovered/Resolved]
  - Pruritus [Recovered/Resolved]
  - Larynx irritation [Recovered/Resolved]
  - Rash generalised [Recovered/Resolved]

NARRATIVE: CASE EVENT DATE: 201505
